FAERS Safety Report 20583903 (Version 1)
Quarter: 2022Q1

REPORT INFORMATION
  Report Type: Spontaneous
  Country: JP (occurrence: JP)
  Receive Date: 20220311
  Receipt Date: 20220311
  Transmission Date: 20220423
  Serious: Yes (Other)
  Sender: FDA-Public Use
  Company Number: JP-SA-2022SA081645

PATIENT
  Age: 63 Year
  Sex: Male

DRUGS (2)
  1. OXALIPLATIN [Suspect]
     Active Substance: OXALIPLATIN
     Indication: Chemotherapy
     Dosage: UNK UNK, QCY
  2. CAPECITABINE [Suspect]
     Active Substance: CAPECITABINE
     Indication: Chemotherapy
     Dosage: UNK UNK, QCY

REACTIONS (3)
  - Diarrhoea [Recovering/Resolving]
  - Ascites [Recovering/Resolving]
  - Venoocclusive disease [Recovering/Resolving]
